FAERS Safety Report 11580279 (Version 1)
Quarter: 2015Q3

REPORT INFORMATION
  Report Type: Spontaneous
  Country: JP (occurrence: JP)
  Receive Date: 20150930
  Receipt Date: 20150930
  Transmission Date: 20151125
  Serious: Yes (Hospitalization)
  Sender: FDA-Public Use
  Company Number: PHJP2015JP016308

PATIENT
  Age: 70 Year
  Sex: Male

DRUGS (1)
  1. TEGRETOL [Suspect]
     Active Substance: CARBAMAZEPINE
     Indication: CANCER PAIN
     Dosage: UNK
     Route: 048

REACTIONS (2)
  - Lung neoplasm malignant [Unknown]
  - Off label use [Unknown]
